FAERS Safety Report 8800611 (Version 2)
Quarter: 2015Q1

REPORT INFORMATION
  Report Type: Report from Study
  Country: US (occurrence: US)
  Receive Date: 20120921
  Receipt Date: 20150321
  Transmission Date: 20150721
  Serious: Yes (Death)
  Sender: FDA-Public Use
  Company Number: US-ROCHE-1125002

PATIENT
  Age: 45 Year
  Sex: Female

DRUGS (24)
  1. IBUPROFEN. [Concomitant]
     Active Substance: IBUPROFEN
  2. LORTAB (UNITED STATES) [Concomitant]
     Indication: BACK PAIN
  3. POTASSIUM CHLORIDE. [Concomitant]
     Active Substance: POTASSIUM CHLORIDE
  4. AVASTIN [Suspect]
     Active Substance: BEVACIZUMAB
     Indication: OVARIAN CANCER
     Route: 042
     Dates: start: 20090430
  5. CYCLOBENZAPRINE [Concomitant]
     Active Substance: CYCLOBENZAPRINE
  6. IMODIUM [Concomitant]
     Active Substance: LOPERAMIDE HYDROCHLORIDE
     Indication: DIARRHOEA
     Route: 065
  7. K-DUR [Concomitant]
     Active Substance: POTASSIUM CHLORIDE
     Route: 065
  8. AVASTIN [Suspect]
     Active Substance: BEVACIZUMAB
     Route: 042
  9. VALIUM [Concomitant]
     Active Substance: DIAZEPAM
  10. SILVER NITRATE. [Concomitant]
     Active Substance: SILVER NITRATE
     Indication: VAGINAL HAEMORRHAGE
  11. DECADRON [Concomitant]
     Active Substance: DEXAMETHASONE
     Route: 065
  12. AVASTIN [Suspect]
     Active Substance: BEVACIZUMAB
     Route: 042
  13. DOXIL [Concomitant]
     Active Substance: DOXORUBICIN HYDROCHLORIDE
     Route: 042
  14. TAGAMET [Concomitant]
     Active Substance: CIMETIDINE
  15. OXYCONTIN [Concomitant]
     Active Substance: OXYCODONE HYDROCHLORIDE
     Route: 065
  16. ALOXI [Concomitant]
     Active Substance: PALONOSETRON HYDROCHLORIDE
     Indication: NAUSEA
     Route: 065
  17. HEPARIN [Concomitant]
     Active Substance: HEPARIN SODIUM
     Route: 042
  18. AVASTIN [Suspect]
     Active Substance: BEVACIZUMAB
     Route: 042
  19. GEMZAR [Concomitant]
     Active Substance: GEMCITABINE HYDROCHLORIDE
  20. PHENERGAN [Concomitant]
     Active Substance: PROMETHAZINE HYDROCHLORIDE
  21. CISPLATIN. [Concomitant]
     Active Substance: CISPLATIN
  22. CELEXA (UNITED STATES) [Concomitant]
     Route: 065
  23. KAY CIEL [Concomitant]
     Active Substance: POTASSIUM CHLORIDE
     Route: 065
  24. IMODIUM [Concomitant]
     Active Substance: LOPERAMIDE HYDROCHLORIDE

REACTIONS (24)
  - Oral pain [Unknown]
  - Insomnia [Unknown]
  - Cough [Unknown]
  - Anxiety [Unknown]
  - Hypokalaemia [Unknown]
  - Stomatitis [Unknown]
  - Sinus congestion [Unknown]
  - Musculoskeletal pain [Unknown]
  - Pain [Unknown]
  - Disease progression [Unknown]
  - Rash [Unknown]
  - Death [Fatal]
  - Diarrhoea [Recovering/Resolving]
  - Vomiting [Unknown]
  - Road traffic accident [Unknown]
  - Abdominal pain [Unknown]
  - Neuropathy peripheral [Unknown]
  - Fatigue [Unknown]
  - Haemorrhage [Unknown]
  - Asthenia [Recovering/Resolving]
  - Nausea [Unknown]
  - Hot flush [Unknown]
  - Intestinal transit time increased [Unknown]
  - Weight decreased [Unknown]

NARRATIVE: CASE EVENT DATE: 20091005
